FAERS Safety Report 24223298 (Version 1)
Quarter: 2024Q3

REPORT INFORMATION
  Report Type: Spontaneous
  Country: US (occurrence: US)
  Receive Date: 20240819
  Receipt Date: 20240819
  Transmission Date: 20241016
  Serious: No
  Sender: ANI
  Company Number: US-ANIPHARMA-2023-US-042996

PATIENT
  Age: 51 Year
  Sex: Female

DRUGS (4)
  1. ARIMIDEX [Suspect]
     Active Substance: ANASTROZOLE
     Indication: HER2 negative breast cancer
     Route: 048
     Dates: end: 202012
  2. TAMOXIFEN [Suspect]
     Active Substance: TAMOXIFEN
     Route: 065
     Dates: end: 202012
  3. RALOXIFENE [Suspect]
     Active Substance: RALOXIFENE
     Route: 065
     Dates: end: 202012
  4. FEMARA [Suspect]
     Active Substance: LETROZOLE
     Route: 065
     Dates: end: 202012

REACTIONS (1)
  - Drug intolerance [Unknown]
